FAERS Safety Report 10633965 (Version 4)
Quarter: 2015Q1

REPORT INFORMATION
  Report Type: Report from Study
  Country: DE (occurrence: DE)
  Receive Date: 20141205
  Receipt Date: 20150123
  Transmission Date: 20150720
  Serious: Yes (Hospitalization, Other)
  Sender: FDA-Public Use
  Company Number: PHHY2014DE109910

PATIENT
  Age: 34 Year
  Sex: Male

DRUGS (5)
  1. GABAPENTINE [Concomitant]
     Active Substance: GABAPENTIN
     Indication: NEURALGIA
     Dosage: 2400 MG, QD
     Route: 048
  2. ABILIFY [Concomitant]
     Active Substance: ARIPIPRAZOLE
     Indication: BORDERLINE PERSONALITY DISORDER
     Dosage: 15 MG, QD
     Route: 048
  3. CITALOPRAM [Concomitant]
     Active Substance: CITALOPRAM HYDROBROMIDE
     Indication: DEPRESSION
     Dosage: 40 MG, QD
     Route: 048
  4. GILENYA [Suspect]
     Active Substance: FINGOLIMOD HYDROCHLORIDE
     Indication: MULTIPLE SCLEROSIS
     Dosage: 0.5 MG, QD
     Route: 048
     Dates: start: 20130926, end: 20141125
  5. CHLORPROTHIXENE//CHLORPROTHIXENE HYDROCHLORIDE [Concomitant]
     Indication: BORDERLINE PERSONALITY DISORDER
     Dosage: 100 MG, QD
     Route: 048

REACTIONS (5)
  - Impaired healing [Recovering/Resolving]
  - Alanine aminotransferase increased [Recovered/Resolved]
  - Foot fracture [Recovering/Resolving]
  - Multiple sclerosis relapse [Unknown]
  - Gamma-glutamyltransferase increased [Recovering/Resolving]

NARRATIVE: CASE EVENT DATE: 2014
